FAERS Safety Report 14152774 (Version 1)
Quarter: 2017Q4

REPORT INFORMATION
  Report Type: Report from Study
  Country: CA (occurrence: CA)
  Receive Date: 20171102
  Receipt Date: 20171102
  Transmission Date: 20180321
  Serious: Yes (Other)
  Sender: FDA-Public Use
  Company Number: CA-GLAXOSMITHKLINE-CA2017GSK138062

PATIENT
  Sex: Female

DRUGS (4)
  1. MEPOLIZUMAB [Suspect]
     Active Substance: MEPOLIZUMAB
     Indication: ASTHMA
     Dosage: 100 MG, Z, MONTHLY
     Route: 042
     Dates: start: 20161226
  2. MEPOLIZUMAB [Suspect]
     Active Substance: MEPOLIZUMAB
     Dosage: 100 MG, UNK,  MONTHLY
     Route: 042
     Dates: start: 20170811
  3. MEPOLIZUMAB [Suspect]
     Active Substance: MEPOLIZUMAB
     Dosage: 100 MG, UNK,  MONTHLY
     Route: 042
     Dates: start: 20170908
  4. MEPOLIZUMAB [Suspect]
     Active Substance: MEPOLIZUMAB
     Dosage: 100 MG, Z, MONTHLY
     Route: 042
     Dates: start: 20171006

REACTIONS (7)
  - Ear pain [Unknown]
  - Respiratory tract congestion [Unknown]
  - Productive cough [Unknown]
  - Pyrexia [Unknown]
  - Sebaceous carcinoma [Recovered/Resolved]
  - Limb mass [Recovered/Resolved]
  - Lower respiratory tract infection [Unknown]
